FAERS Safety Report 6941359-0 (Version None)
Quarter: 2010Q3

REPORT INFORMATION
  Report Type: 
  Country: None (occurrence: None)
  Receive Date: 20100825
  Receipt Date: 20100811
  Transmission Date: 20110219
  Serious: Yes (Other)
  Sender: FDA-Public Use
  Company Number: PHHY2010US54056

PATIENT
  Sex: Female

DRUGS (1)
  1. RECLAST [Suspect]
     Indication: OSTEOPOROSIS
     Route: 042

REACTIONS (7)
  - ARTHRALGIA [None]
  - BONE FORMATION INCREASED [None]
  - HIP FRACTURE [None]
  - INFUSION SITE DISCOMFORT [None]
  - OSTEOLYSIS [None]
  - SPINAL COMPRESSION FRACTURE [None]
  - UPPER LIMB FRACTURE [None]
